FAERS Safety Report 4331347-5 (Version None)
Quarter: 2004Q1

REPORT INFORMATION
  Report Type: 
  Country: None (occurrence: None)
  Receive Date: 20040329
  Receipt Date: 20040311
  Transmission Date: 20041129
  Serious: Yes (Hospitalization)
  Sender: FDA-Public Use
  Company Number: 154698

PATIENT
  Age: 62 Year
  Sex: Male
  Weight: 106.5953 kg

DRUGS (9)
  1. AVONEX [Suspect]
     Indication: MULTIPLE SCLEROSIS
     Dosage: 30 MCG QW IM
     Route: 030
     Dates: start: 20001007
  2. MONOPRIL [Concomitant]
  3. CARDIZEM [Concomitant]
  4. ASPIRIN [Concomitant]
  5. PEPCID [Concomitant]
  6. TEGRETOL [Concomitant]
  7. FLOMAX ^CHIESI^ [Concomitant]
  8. MULTI-VITAMINS [Concomitant]
  9. LIPITOR [Concomitant]

REACTIONS (1)
  - PANCREATITIS ACUTE [None]
